FAERS Safety Report 5341957-4 (Version None)
Quarter: 2007Q2

REPORT INFORMATION
  Report Type: 
  Country: None (occurrence: None)
  Receive Date: 20070401
  Receipt Date: 20060322
  Transmission Date: 20071010
  Serious: Yes (Other)
  Sender: FDA-Public Use
  Company Number: 2006BH006221

PATIENT
  Age: 52 Year
  Sex: Female
  Weight: 48.9885 kg

DRUGS (2)
  1. REGLAN [Suspect]
     Indication: NAUSEA
     Dosage: SEE IMAGE
     Route: 042
     Dates: start: 20020101, end: 20020101
  2. INSULIN [Concomitant]

REACTIONS (2)
  - DEPRESSION [None]
  - NAUSEA [None]
